FAERS Safety Report 10912244 (Version 1)
Quarter: 2015Q1

REPORT INFORMATION
  Report Type: Report from Study
  Country: FR (occurrence: FR)
  Receive Date: 20150313
  Receipt Date: 20150313
  Transmission Date: 20150721
  Serious: Yes (Death, Hospitalization)
  Sender: FDA-Public Use
  Company Number: FR-ROCHE-1164818

PATIENT
  Age: 78 Year
  Sex: Female

DRUGS (7)
  1. METHYLPREDNISOLONE. [Concomitant]
     Active Substance: METHYLPREDNISOLONE
     Route: 065
  2. RITUXIMAB [Suspect]
     Active Substance: RITUXIMAB
     Route: 042
     Dates: start: 20070720
  3. RITUXIMAB [Suspect]
     Active Substance: RITUXIMAB
     Indication: RHEUMATOID ARTHRITIS
     Route: 042
     Dates: start: 20070705
  4. METHOTREXATE [Concomitant]
     Active Substance: METHOTREXATE
     Route: 065
  5. RITUXIMAB [Suspect]
     Active Substance: RITUXIMAB
     Route: 042
     Dates: end: 20100511
  6. CORTANCYL [Concomitant]
     Active Substance: PREDNISONE
     Route: 065
  7. PARACETAMOL [Concomitant]
     Active Substance: ACETAMINOPHEN

REACTIONS (18)
  - Chronic respiratory failure [Fatal]
  - Hypoxic-ischaemic encephalopathy [Fatal]
  - Arrhythmia [Unknown]
  - Acute kidney injury [Fatal]
  - Lung infection [Unknown]
  - Septic shock [Unknown]
  - Hypersensitivity [Recovered/Resolved]
  - Back pain [Recovered/Resolved]
  - Groin infection [Not Recovered/Not Resolved]
  - Hypogammaglobulinaemia [Unknown]
  - Acute pulmonary oedema [Unknown]
  - Anaemia [Unknown]
  - Abdominal wall haematoma [Fatal]
  - Cyst [Not Recovered/Not Resolved]
  - Wound [Unknown]
  - Urinary tract infection [Unknown]
  - Atrial fibrillation [Unknown]
  - Infusion related reaction [Recovered/Resolved]

NARRATIVE: CASE EVENT DATE: 20070705
